FAERS Safety Report 5357083-4 (Version None)
Quarter: 2007Q2

REPORT INFORMATION
  Report Type: 
  Country: None (occurrence: None)
  Receive Date: 20070612
  Receipt Date: 20070612
  Transmission Date: 20071010
  Serious: Yes (Hospitalization)
  Sender: FDA-Public Use
  Company Number: None

PATIENT
  Sex: Female
  Weight: 74.8435 kg

DRUGS (1)
  1. NEUROLITE [Suspect]
     Indication: AMNESIA
     Dosage: 25MLI ONE TIME IV
     Route: 042
     Dates: start: 20070525

REACTIONS (2)
  - CONFUSIONAL STATE [None]
  - DYSKINESIA [None]
